FAERS Safety Report 9091626 (Version 1)
Quarter: 2013Q1

REPORT INFORMATION
  Report Type: Report from Study
  Country: US (occurrence: US)
  Receive Date: 20130131
  Receipt Date: 20130131
  Transmission Date: 20140127
  Serious: No
  Sender: FDA-Public Use
  Company Number: US-ABBOTT-12P-163-0992645-00

PATIENT
  Age: 86 Year
  Sex: Female

DRUGS (18)
  1. HUMIRA [Suspect]
     Indication: CROHN^S DISEASE
  2. ANTIVERT [Concomitant]
     Indication: VERTIGO
     Dosage: AS NEEDED
  3. LASIX [Concomitant]
     Indication: PRODUCT USED FOR UNKNOWN INDICATION
  4. COZAAR [Concomitant]
     Indication: DYSURIA
  5. POTASSIUM [Concomitant]
     Indication: PRODUCT USED FOR UNKNOWN INDICATION
  6. CITALOPRAM [Concomitant]
     Indication: DEPRESSION
  7. GLYBURIDE [Concomitant]
     Indication: DIABETES MELLITUS
  8. NEURONTIN [Concomitant]
     Indication: NEUROPATHY PERIPHERAL
  9. VICODIN [Concomitant]
     Indication: PAIN
     Dosage: 1 - 5/500 TAB EVERY 6 HOURS AS NEEDED
  10. UNKNOWN HYPERTENSION MEDICATION [Concomitant]
     Indication: HYPERTENSION
  11. UNKNOWN THYROID MEDICATION [Concomitant]
     Indication: HYPERTHYROIDISM
  12. UNKNOWN CHOLESTEROL MEDICATION [Concomitant]
     Indication: BLOOD CHOLESTEROL INCREASED
  13. XANAX [Concomitant]
     Indication: ANXIETY
  14. NEXIUM [Concomitant]
     Indication: GASTROOESOPHAGEAL REFLUX DISEASE
     Dosage: 1 TAB DAILY
  15. CENTRUM SILVER [Concomitant]
     Indication: PRODUCT USED FOR UNKNOWN INDICATION
  16. OMEGA FISH OIL [Concomitant]
     Indication: PRODUCT USED FOR UNKNOWN INDICATION
  17. CALCIUM [Concomitant]
     Indication: PRODUCT USED FOR UNKNOWN INDICATION
  18. COUMADIN [Concomitant]
     Indication: PRODUCT USED FOR UNKNOWN INDICATION
     Dosage: 1 1/2 - 5MG TABS TWICE WEEKLY, 1/2 - 5MG TAB 5 DAYS WEEKLY

REACTIONS (6)
  - Contusion [Recovering/Resolving]
  - Abdominal pain lower [Not Recovered/Not Resolved]
  - Abdominal pain [Not Recovered/Not Resolved]
  - Fall [Not Recovered/Not Resolved]
  - Back pain [Not Recovered/Not Resolved]
  - Pain in extremity [Not Recovered/Not Resolved]
